FAERS Safety Report 24681617 (Version 1)
Quarter: 2024Q4

REPORT INFORMATION
  Report Type: Spontaneous
  Country: US (occurrence: US)
  Receive Date: 20241130
  Receipt Date: 20241130
  Transmission Date: 20250115
  Serious: No
  Sender: Haleon PLC
  Company Number: US-HALEON-2211752

PATIENT
  Age: 37 Year
  Sex: Male

DRUGS (1)
  1. SENSODYNE ADVANCED WHITENING [Suspect]
     Active Substance: POTASSIUM NITRATE\SODIUM FLUORIDE
     Indication: Hyperaesthesia teeth
     Dosage: EXPDATE:20270131
     Dates: start: 20241106, end: 20241126

REACTIONS (1)
  - Drug ineffective [Unknown]
